FAERS Safety Report 17823413 (Version 1)
Quarter: 2020Q2

REPORT INFORMATION
  Report Type: Spontaneous
  Country: DK (occurrence: DK)
  Receive Date: 20200526
  Receipt Date: 20200526
  Transmission Date: 20200714
  Serious: Yes (Other)
  Sender: FDA-Public Use
  Company Number: DK-ENDO PHARMACEUTICALS INC-2020-003831

PATIENT
  Age: 68 Year
  Sex: Male

DRUGS (1)
  1. FORTESTA [Suspect]
     Active Substance: TESTOSTERONE
     Indication: HORMONE THERAPY
     Dosage: 2 DF, DAILY
     Route: 003
     Dates: start: 2014

REACTIONS (2)
  - Retinal vascular thrombosis [Unknown]
  - Transient ischaemic attack [Unknown]

NARRATIVE: CASE EVENT DATE: 2016
